FAERS Safety Report 5938982-9 (Version None)
Quarter: 2008Q4

REPORT INFORMATION
  Report Type: 
  Country: None (occurrence: None)
  Receive Date: 20081103
  Receipt Date: 20080918
  Transmission Date: 20090506
  Serious: Yes (Other)
  Sender: FDA-Public Use
  Company Number: US-JNJFOC-20080905276

PATIENT
  Sex: Female

DRUGS (1)
  1. DORIBAX [Suspect]
     Indication: ACINETOBACTER INFECTION
     Route: 041

REACTIONS (1)
  - PANCYTOPENIA [None]
